FAERS Safety Report 16493155 (Version 2)
Quarter: 2019Q2

REPORT INFORMATION
  Report Type: Spontaneous
  Country: US (occurrence: US)
  Receive Date: 20190628
  Receipt Date: 20190628
  Transmission Date: 20190711
  Serious: No
  Sender: FDA-Public Use
  Company Number: US-BAYER-2019-122097

PATIENT
  Age: 74 Year
  Sex: Female
  Weight: 50 kg

DRUGS (2)
  1. MIRALAX [Suspect]
     Active Substance: POLYETHYLENE GLYCOL 3350
     Indication: COLONOSCOPY
     Dosage: 1 DF, PRN
     Route: 048
  2. MIRALAX [Suspect]
     Active Substance: POLYETHYLENE GLYCOL 3350
     Indication: COLONOSCOPY
     Dosage: 238 G
     Route: 048
     Dates: start: 20190609, end: 20190609

REACTIONS (6)
  - Product use in unapproved indication [Unknown]
  - Retching [Unknown]
  - Nausea [Unknown]
  - Headache [Recovered/Resolved]
  - Malaise [Unknown]
  - Off label use [Unknown]

NARRATIVE: CASE EVENT DATE: 20190524
